FAERS Safety Report 8173091-2 (Version None)
Quarter: 2012Q1

REPORT INFORMATION
  Report Type: 
  Country: None (occurrence: None)
  Receive Date: 20120229
  Receipt Date: 20120220
  Transmission Date: 20120608
  Serious: Yes (Other)
  Sender: FDA-Public Use
  Company Number: CA-JNJFOC-20120210716

PATIENT
  Sex: Female

DRUGS (6)
  1. MORPHINE [Concomitant]
     Route: 065
  2. PANTOPRAZOLE SODIUM [Concomitant]
     Route: 048
  3. REMICADE [Suspect]
     Indication: COLITIS ULCERATIVE
     Route: 042
     Dates: start: 20120208, end: 20120208
  4. SYNTHROID [Concomitant]
     Route: 048
  5. PREDNISONE [Concomitant]
     Route: 048
     Dates: start: 20120214
  6. ASACOL [Concomitant]
     Route: 065

REACTIONS (1)
  - COLECTOMY TOTAL [None]
